FAERS Safety Report 19078031 (Version 1)
Quarter: 2021Q1

REPORT INFORMATION
  Report Type: Spontaneous
  Country: US (occurrence: US)
  Receive Date: 20210331
  Receipt Date: 20210331
  Transmission Date: 20210420
  Serious: Yes (Hospitalization)
  Sender: FDA-Public Use
  Company Number: None

PATIENT
  Age: 3 Year
  Sex: Male
  Weight: 12.4 kg

DRUGS (4)
  1. CYTARABINE 324.8MG [Suspect]
     Active Substance: CYTARABINE
     Dates: end: 20210318
  2. CYCLOPHOSPHAMIDE 540MG [Suspect]
     Active Substance: CYCLOPHOSPHAMIDE
     Dates: end: 20210308
  3. THIOGUANINE (6?TG) 340MG [Suspect]
     Active Substance: THIOGUANINE
     Dates: end: 20210318
  4. METHOTREXATE 12MG [Suspect]
     Active Substance: METHOTREXATE
     Dates: end: 20210308

REACTIONS (8)
  - Mouth haemorrhage [None]
  - Weight increased [None]
  - Thrombocytopenia [None]
  - Transaminases increased [None]
  - Ammonia increased [None]
  - Epistaxis [None]
  - Ascites [None]
  - Gallbladder enlargement [None]

NARRATIVE: CASE EVENT DATE: 20210319
